FAERS Safety Report 5706411-6 (Version None)
Quarter: 2008Q2

REPORT INFORMATION
  Report Type: 
  Country: None (occurrence: None)
  Receive Date: 20080411
  Receipt Date: 20080321
  Transmission Date: 20081010
  Serious: Yes (Other)
  Sender: FDA-Public Use
  Company Number: JPI-P-003362

PATIENT
  Age: 44 Year
  Sex: Male

DRUGS (12)
  1. XYREM [Suspect]
     Indication: CATAPLEXY
     Dosage: SEE IMAGE
     Dates: start: 20080117, end: 20080131
  2. XYREM [Suspect]
     Indication: NARCOLEPSY
     Dosage: SEE IMAGE
     Dates: start: 20080117, end: 20080131
  3. XYREM [Suspect]
     Indication: CATAPLEXY
     Dosage: SEE IMAGE
     Dates: start: 20080201, end: 20080219
  4. XYREM [Suspect]
     Indication: NARCOLEPSY
     Dosage: SEE IMAGE
     Dates: start: 20080201, end: 20080219
  5. XYREM [Suspect]
     Indication: CATAPLEXY
     Dosage: SEE IMAGE
     Dates: start: 20080220, end: 20080304
  6. XYREM [Suspect]
     Indication: NARCOLEPSY
     Dosage: SEE IMAGE
     Dates: start: 20080220, end: 20080304
  7. XYREM [Suspect]
     Indication: CATAPLEXY
     Dosage: SEE IMAGE
     Dates: start: 20080305
  8. XYREM [Suspect]
     Indication: NARCOLEPSY
     Dosage: SEE IMAGE
     Dates: start: 20080305
  9. PRAMIPEXOLE DIHYDROCHLORIDE [Suspect]
     Indication: RESTLESS LEGS SYNDROME
     Dosage: (0.36 MG), ORAL
     Route: 048
     Dates: end: 20080117
  10. LEVETIRACETAM [Concomitant]
  11. MODAFINIL [Concomitant]
  12. PREGABALIN (PREGABALIN) [Concomitant]

REACTIONS (11)
  - CONVULSION [None]
  - FATIGUE [None]
  - FORMICATION [None]
  - HEADACHE [None]
  - INFLUENZA [None]
  - MIGRAINE [None]
  - NERVOUSNESS [None]
  - NIGHTMARE [None]
  - PAIN IN EXTREMITY [None]
  - RESTLESS LEGS SYNDROME [None]
  - VISUAL DISTURBANCE [None]
